FAERS Safety Report 10206805 (Version 1)
Quarter: 2014Q2

REPORT INFORMATION
  Report Type: Spontaneous
  Country: US (occurrence: None)
  Receive Date: 20140527
  Receipt Date: 20140527
  Transmission Date: 20141212
  Serious: Yes (Life-Threatening)
  Sender: FDA-Public Use
  Company Number: None

PATIENT
  Age: 52 Year
  Sex: Female
  Weight: 44 kg

DRUGS (1)
  1. DEFINITY [Suspect]
     Indication: SCAN WITH CONTRAST
     Dosage: 1.5 ML/8.5 ML NACL; GIVEN 3ML  INTRAVENOUS
     Route: 042
     Dates: start: 20140429

REACTIONS (3)
  - Muscle spasms [None]
  - Supraventricular tachycardia [None]
  - Contrast media reaction [None]
